FAERS Safety Report 6546668-5 (Version None)
Quarter: 2010Q1

REPORT INFORMATION
  Report Type: 
  Country: None (occurrence: None)
  Receive Date: 20100119
  Receipt Date: 20100104
  Transmission Date: 20100710
  Serious: Yes (Hospitalization, Other)
  Sender: FDA-Public Use
  Company Number: 2009AC000362

PATIENT
  Age: 74 Year
  Sex: Female

DRUGS (40)
  1. DIGOXIN [Suspect]
     Dosage: 0.25 MG; PO
     Route: 048
  2. MECLIZINE [Concomitant]
  3. ALLOPURINOL [Concomitant]
  4. SYNTHROID [Concomitant]
  5. POTASSIUM CHLORIDE [Concomitant]
  6. NEURONTIN [Concomitant]
  7. QUININE SULFATE [Concomitant]
  8. RANITIDINE [Concomitant]
  9. NAPROXEN [Concomitant]
  10. XENICAL [Concomitant]
  11. AMITRIPTYLINE HCL [Concomitant]
  12. FUROSEMIDE [Concomitant]
  13. PREMARIN [Concomitant]
  14. LEVOTHYROXINE SODIUM [Concomitant]
  15. POTASSIUM CHLORIDE [Concomitant]
  16. NAPROXEN [Concomitant]
  17. ALLOPURINOL [Concomitant]
  18. METOCLOPRAMIDE [Concomitant]
  19. RANITIDINE [Concomitant]
  20. FUROSEMIDE [Concomitant]
  21. GABAPENTIN [Concomitant]
  22. AMITRIPTYLINE HCL [Concomitant]
  23. PLAVIX [Concomitant]
  24. CRESTOR [Concomitant]
  25. UTA [Concomitant]
  26. BENZONATATE [Concomitant]
  27. CEPHALEXIN [Concomitant]
  28. AURODEX OTIC DROPS [Concomitant]
  29. MELOXICAM [Concomitant]
  30. ASPIRIN [Concomitant]
  31. LORTAB [Concomitant]
  32. LEVOTHYROXINE SODIUM [Concomitant]
  33. POTASSIUM CHLORIDE [Concomitant]
  34. NEURONTIN [Concomitant]
  35. QUININE SULFATE [Concomitant]
  36. ALLOPURINOL [Concomitant]
  37. FUROSEMIDE [Concomitant]
  38. ZANTAC [Concomitant]
  39. ELAVIL [Concomitant]
  40. PREVACID [Concomitant]

REACTIONS (22)
  - ANXIETY [None]
  - ARTHRITIS [None]
  - BRONCHITIS [None]
  - CORONARY ARTERY DISEASE [None]
  - DIZZINESS [None]
  - FAECES DISCOLOURED [None]
  - GASTRIC ULCER [None]
  - GASTROINTESTINAL STROMAL TUMOUR [None]
  - HAEMATEMESIS [None]
  - HEADACHE [None]
  - HYPERTENSION [None]
  - INJURY [None]
  - MITRAL VALVE INCOMPETENCE [None]
  - MUSCULAR WEAKNESS [None]
  - NAUSEA [None]
  - PAIN [None]
  - PALPITATIONS [None]
  - STOMACH MASS [None]
  - TRICUSPID VALVE INCOMPETENCE [None]
  - UPPER GASTROINTESTINAL HAEMORRHAGE [None]
  - UPPER RESPIRATORY TRACT INFECTION [None]
  - VOMITING [None]
